FAERS Safety Report 20063525 (Version 1)
Quarter: 2021Q4

REPORT INFORMATION
  Report Type: Spontaneous
  Country: FR (occurrence: FR)
  Receive Date: 20211112
  Receipt Date: 20211112
  Transmission Date: 20220303
  Serious: Yes (Hospitalization)
  Sender: FDA-Public Use
  Company Number: FR-NOVARTISPH-NVSC2021FR255248

PATIENT
  Age: 73 Year
  Sex: Male
  Weight: 99 kg

DRUGS (15)
  1. ESIDREX [Suspect]
     Active Substance: HYDROCHLOROTHIAZIDE
     Indication: Hypertension
     Dosage: 12.5 MG, QD
     Route: 048
  2. ROSUVASTATIN [Suspect]
     Active Substance: ROSUVASTATIN
     Indication: Dyslipidaemia
     Dosage: 2.5 MG, QD
     Route: 048
  3. ROSUVASTATIN [Suspect]
     Active Substance: ROSUVASTATIN
     Dosage: 5 MG, QD
     Route: 048
  4. EXFORGE [Suspect]
     Active Substance: AMLODIPINE BESYLATE\VALSARTAN
     Indication: Hypertension
     Dosage: 1 DF, QD (10MG/160MG)
     Route: 048
  5. METFORMIN [Suspect]
     Active Substance: METFORMIN HYDROCHLORIDE
     Indication: Diabetes mellitus
     Dosage: 3 G, Q8H
     Route: 048
     Dates: end: 20211015
  6. BISOPROLOL FUMARATE [Suspect]
     Active Substance: BISOPROLOL FUMARATE
     Indication: Hypertension
     Dosage: 2.5 MG, QD
     Route: 048
  7. HUMALOG [Suspect]
     Active Substance: INSULIN LISPRO
     Indication: Diabetes mellitus
     Dosage: UNK (100 U/ML, SOLUTION FOR INJECTION IN 1.5ML CATRIDGE)
     Route: 065
     Dates: end: 20211019
  8. TOUJEO [Suspect]
     Active Substance: INSULIN GLARGINE
     Indication: Diabetes mellitus
     Dosage: UNK (100 UNITS/ML SOLUTION FOR INJECTION IN CATRIDGE)
     Route: 065
  9. PLAVIX [Suspect]
     Active Substance: CLOPIDOGREL BISULFATE
     Indication: Anticoagulant therapy
     Dosage: 75 MG, QD
     Route: 048
     Dates: start: 2020
  10. KARDEGIC [Suspect]
     Active Substance: ASPIRIN DL-LYSINE
     Indication: Anticoagulant therapy
     Dosage: 75 MG, QD (POUDRE POUR SOLUTION BUVABLE EN)
     Route: 048
     Dates: start: 2020
  11. INIPOMP [Suspect]
     Active Substance: PANTOPRAZOLE SODIUM
     Indication: Dyslipidaemia
     Dosage: 20 MG, QD
     Route: 048
  12. VITAMIN B12 [Suspect]
     Active Substance: CYANOCOBALAMIN
     Indication: Product used for unknown indication
     Dosage: 2 DF (EVERY 3.5 DAYS)
     Route: 048
  13. LATANOPROST [Concomitant]
     Active Substance: LATANOPROST
     Indication: Retinopathy
     Dosage: 1 DRP, QD (1/12 MILLILITRE)
     Route: 047
  14. TIMOLOL [Concomitant]
     Active Substance: TIMOLOL
     Indication: Retinopathy
     Dosage: 1 DRP, QD (1/12 MILLILITRE)
     Route: 047
  15. CIPROFLOXACIN [Concomitant]
     Active Substance: CIPROFLOXACIN
     Indication: Osteitis
     Dosage: 750 MG, Q12H
     Route: 048
     Dates: start: 20210923

REACTIONS (2)
  - Pulmonary fibrosis [Not Recovered/Not Resolved]
  - Interstitial lung disease [Not Recovered/Not Resolved]

NARRATIVE: CASE EVENT DATE: 20200101
